FAERS Safety Report 5128251-1 (Version None)
Quarter: 2006Q4

REPORT INFORMATION
  Report Type: 
  Country: None (occurrence: None)
  Receive Date: 20061011
  Receipt Date: 20060920
  Transmission Date: 20070319
  Serious: Yes (Hospitalization)
  Sender: FDA-Public Use
  Company Number: US200609005043

PATIENT
  Age: 70 Year
  Sex: Female

DRUGS (3)
  1. FORTEO [Suspect]
     Indication: OSTEOPOROSIS
     Dosage: UNK, UNK, UNK
     Dates: start: 20060501, end: 20060701
  2. FORTEO [Concomitant]
  3. INSULIN (INSULIN) [Concomitant]

REACTIONS (3)
  - DIZZINESS [None]
  - FEELING HOT [None]
  - HYPOTENSION [None]
